FAERS Safety Report 18797075 (Version 2)
Quarter: 2021Q1

REPORT INFORMATION
  Report Type: Spontaneous
  Country: CA (occurrence: CA)
  Receive Date: 20210128
  Receipt Date: 20210309
  Transmission Date: 20210419
  Serious: Yes (Disabling)
  Sender: FDA-Public Use
  Company Number: CA-ROCHE-2758032

PATIENT
  Age: 43 Year
  Sex: Female

DRUGS (1)
  1. OCREVUS [Suspect]
     Active Substance: OCRELIZUMAB
     Indication: MULTIPLE SCLEROSIS
     Route: 042

REACTIONS (2)
  - Balance disorder [Recovered/Resolved with Sequelae]
  - Fall [Unknown]

NARRATIVE: CASE EVENT DATE: 202101
